FAERS Safety Report 21844374 (Version 1)
Quarter: 2023Q1

REPORT INFORMATION
  Report Type: Spontaneous
  Country: US (occurrence: None)
  Receive Date: 20230110
  Receipt Date: 20230110
  Transmission Date: 20230417
  Serious: Yes (Hospitalization)
  Sender: FDA-Public Use
  Company Number: None

PATIENT
  Age: 55 Year
  Sex: Female

DRUGS (3)
  1. TOPIRAMATE [Suspect]
     Active Substance: TOPIRAMATE
     Indication: Migraine
  2. TOPIRAMATE [Suspect]
     Active Substance: TOPIRAMATE
     Indication: Weight decreased
  3. PHENTERMINE [Suspect]
     Active Substance: PHENTERMINE

REACTIONS (3)
  - Chest pain [None]
  - Mitral valve incompetence [None]
  - Hypertension [None]

NARRATIVE: CASE EVENT DATE: 20220928
